FAERS Safety Report 9720461 (Version 3)
Quarter: 2014Q1

REPORT INFORMATION
  Report Type: Spontaneous
  Country: US (occurrence: US)
  Receive Date: 20131129
  Receipt Date: 20140206
  Transmission Date: 20141002
  Serious: No
  Sender: FDA-Public Use
  Company Number: US-JNJFOC-20131113567

PATIENT
  Age: 73 Year
  Sex: Male
  Weight: 79.83 kg

DRUGS (9)
  1. REMICADE [Suspect]
     Indication: CROHN^S DISEASE
     Route: 042
  2. REMICADE [Suspect]
     Indication: CROHN^S DISEASE
     Route: 042
     Dates: start: 20140116
  3. REMICADE [Suspect]
     Indication: CROHN^S DISEASE
     Route: 042
     Dates: start: 20131114
  4. REMICADE [Suspect]
     Indication: CROHN^S DISEASE
     Dosage: PATIENT^S LAST DOSE
     Route: 042
     Dates: start: 20131107
  5. IRON [Concomitant]
     Dosage: DAILY
     Route: 065
  6. VITAMIN D3 [Concomitant]
     Dosage: 1000 U DAILY.
     Route: 065
  7. NEXIUM [Concomitant]
     Dosage: DAILY
     Route: 065
  8. FUROSEMIDE [Concomitant]
     Dosage: DAILY
     Route: 065
  9. LISINOPRIL [Concomitant]
     Dosage: DAILY
     Route: 065

REACTIONS (1)
  - Herpes zoster [Recovered/Resolved]
